FAERS Safety Report 9068536 (Version 1)
Quarter: 2013Q1

REPORT INFORMATION
  Report Type: Spontaneous
  Country: US (occurrence: None)
  Receive Date: 20130212
  Receipt Date: 20130212
  Transmission Date: 20140127
  Serious: No
  Sender: FDA-Public Use
  Company Number: None

PATIENT
  Age: 7 Year
  Sex: Male

DRUGS (1)
  1. DEXMETHYLPHENIDATE HDL TABLETS 5MG AND 10MG TEVA 00093-5276-01 AND 00093-5277-01 [Suspect]
     Indication: ATTENTION DEFICIT/HYPERACTIVITY DISORDER
     Dosage: DEXMETHYLPHENIDATE HCL 5MG + 10MG BID ORAL
     Route: 048
     Dates: start: 20100406, end: 20130107

REACTIONS (2)
  - Drug ineffective [None]
  - Therapeutic response unexpected with drug substitution [None]
